FAERS Safety Report 8295862-4 (Version None)
Quarter: 2012Q2

REPORT INFORMATION
  Report Type: 
  Country: None (occurrence: None)
  Receive Date: 20120418
  Receipt Date: 20120404
  Transmission Date: 20120825
  Serious: Yes (Hospitalization, Other)
  Sender: FDA-Public Use
  Company Number: US-ROCHE-1057150

PATIENT
  Sex: Female
  Weight: 90.8 kg

DRUGS (2)
  1. OXALIPLATIN [Concomitant]
     Indication: COLON CANCER
     Route: 042
     Dates: start: 20120109, end: 20120220
  2. XELODA [Suspect]
     Indication: COLON CANCER
     Route: 048
     Dates: start: 20111215

REACTIONS (5)
  - CONTUSION [None]
  - ABASIA [None]
  - ELECTROLYTE IMBALANCE [None]
  - PNEUMONIA [None]
  - DYSPNOEA [None]
